FAERS Safety Report 9956656 (Version 1)
Quarter: 2014Q1

REPORT INFORMATION
  Report Type: Report from Study
  Country: US (occurrence: US)
  Receive Date: 20140304
  Receipt Date: 20140304
  Transmission Date: 20141002
  Serious: No
  Sender: FDA-Public Use
  Company Number: US-ABBVIE-13P-163-1092924-00

PATIENT
  Age: 51 Year
  Sex: Male

DRUGS (18)
  1. HUMIRA [Suspect]
     Indication: CROHN^S DISEASE
     Dates: start: 20130206
  2. SPIRIVA [Concomitant]
     Indication: CHRONIC OBSTRUCTIVE PULMONARY DISEASE
     Dosage: DAILY
  3. SPIRIVA [Concomitant]
     Indication: ASTHMA
  4. SYMBICORT [Concomitant]
     Indication: CHRONIC OBSTRUCTIVE PULMONARY DISEASE
  5. SYMBICORT [Concomitant]
     Indication: ASTHMA
  6. ALBUTEROL [Concomitant]
     Indication: CHRONIC OBSTRUCTIVE PULMONARY DISEASE
     Dosage: 3-4 PER DAY
  7. ALBUTEROL [Concomitant]
     Indication: ASTHMA
  8. OXYCODONE [Concomitant]
     Indication: PAIN
     Dosage: EVERY 6 HOURS AS NEEDED
  9. DIAZEPAM [Concomitant]
     Indication: MUSCLE SPASMS
  10. FLEXERIL [Concomitant]
     Indication: MUSCLE SPASMS
  11. IMURAN [Concomitant]
     Indication: GASTRIC DISORDER
     Dosage: DAILY
  12. CALCIUM [Concomitant]
     Indication: PRODUCT USED FOR UNKNOWN INDICATION
  13. B12 [Concomitant]
     Indication: PRODUCT USED FOR UNKNOWN INDICATION
  14. B12 [Concomitant]
     Indication: PRODUCT USED FOR UNKNOWN INDICATION
     Dosage: DAILY
  15. VITAMIN C [Concomitant]
     Indication: PRODUCT USED FOR UNKNOWN INDICATION
  16. LYRICA [Concomitant]
     Indication: PRODUCT USED FOR UNKNOWN INDICATION
  17. CYMBALTA [Concomitant]
     Indication: PRODUCT USED FOR UNKNOWN INDICATION
  18. ZOLOFT [Concomitant]
     Indication: PRODUCT USED FOR UNKNOWN INDICATION

REACTIONS (2)
  - Skin burning sensation [Unknown]
  - Hepatic enzyme increased [Not Recovered/Not Resolved]
